FAERS Safety Report 7221014-2 (Version None)
Quarter: 2011Q1

REPORT INFORMATION
  Report Type: 
  Country: None (occurrence: None)
  Receive Date: 20110112
  Receipt Date: 20110111
  Transmission Date: 20110831
  Serious: Yes (Life-Threatening)
  Sender: FDA-Public Use
  Company Number: IT-PFIZER INC-2010179333

PATIENT
  Age: 60 Year
  Sex: Female

DRUGS (7)
  1. DILATREND [Concomitant]
  2. TAZOCIN [Suspect]
     Indication: PNEUMONIA BACTERIAL
     Dosage: 4.5 G, UNK
     Route: 042
     Dates: start: 20101203, end: 20101203
  3. MICARDIS [Concomitant]
  4. ASPIRIN [Concomitant]
  5. LANTUS [Concomitant]
     Dosage: 24 IU, UNK
     Route: 058
  6. NOVORAPID [Concomitant]
     Dosage: 36 IU, UNK
  7. CARDURA [Concomitant]
     Indication: HYPERTENSION

REACTIONS (4)
  - RASH [None]
  - HEADACHE [None]
  - HYPOTENSION [None]
  - OXYGEN SATURATION DECREASED [None]
